FAERS Safety Report 23527717 (Version 1)
Quarter: 2024Q1

REPORT INFORMATION
  Report Type: Report from Study
  Country: BE (occurrence: BE)
  Receive Date: 20240215
  Receipt Date: 20240215
  Transmission Date: 20240410
  Serious: Yes (Hospitalization, Other)
  Sender: FDA-Public Use
  Company Number: BE-BAXTER-2024BAX012562

PATIENT
  Age: 76 Year
  Sex: Female
  Weight: 69.1 kg

DRUGS (16)
  1. CYCLOPHOSPHAMIDE [Suspect]
     Active Substance: CYCLOPHOSPHAMIDE
     Indication: Diffuse large B-cell lymphoma
     Dosage: 1305 MG, EVERY 3 WEEKS, ONGING
     Route: 042
     Dates: start: 20240108
  2. EPCORITAMAB [Suspect]
     Active Substance: EPCORITAMAB
     Indication: Diffuse large B-cell lymphoma
     Dosage: UNK, DRUG NOT ADMINISTERED
     Route: 065
  3. VINCRISTINE [Suspect]
     Active Substance: VINCRISTINE
     Indication: Diffuse large B-cell lymphoma
     Dosage: 2 MG, EVERY 3 WEEKS, ONGOING
     Route: 042
     Dates: start: 20240108
  4. RITUXIMAB [Suspect]
     Active Substance: RITUXIMAB
     Indication: Diffuse large B-cell lymphoma
     Dosage: 652.5 MG, EVERY 3 WEEKS, ONGOING
     Route: 042
     Dates: start: 20240108
  5. DOXORUBICIN [Suspect]
     Active Substance: DOXORUBICIN
     Indication: Diffuse large B-cell lymphoma
     Dosage: 87 MG, EVERY 3 WEEKS, ONGOING
     Route: 042
     Dates: start: 20240108
  6. PREDNISONE [Suspect]
     Active Substance: PREDNISONE
     Indication: Diffuse large B-cell lymphoma
     Dosage: 100 MG C1-6, DAY 1-5, EVERY 1 DAYS, ONGOING
     Route: 048
     Dates: start: 20240108
  7. ALLOPURINOL [Concomitant]
     Active Substance: ALLOPURINOL
     Indication: Prophylaxis
     Dosage: 300 MG, EVERY 1 DAYS
     Route: 065
     Dates: start: 20240107
  8. NIQUITIN [Concomitant]
     Active Substance: NICOTINE
     Indication: Smoking cessation therapy
     Dosage: 14 MG, EVERY 1 DAYS
     Route: 065
     Dates: start: 20231229
  9. Pantomed [Concomitant]
     Indication: Gastrointestinal disorder prophylaxis
     Dosage: 40 MG, EVERY 1 DAYS
     Route: 065
     Dates: start: 20231230
  10. ZOLPIDEM TARTRATE [Concomitant]
     Active Substance: ZOLPIDEM TARTRATE
     Indication: Sleep disorder therapy
     Dosage: 10 MG, EVERY EVENING, EVERY 1 DAYS
     Route: 065
     Dates: start: 20231229
  11. ZOLPIDEM TARTRATE [Concomitant]
     Active Substance: ZOLPIDEM TARTRATE
     Indication: Prophylaxis
  12. BECLOMETHASONE DIPROPIONATE\FORMOTEROL FUMARATE [Concomitant]
     Active Substance: BECLOMETHASONE DIPROPIONATE\FORMOTEROL FUMARATE
     Indication: Chronic obstructive pulmonary disease
     Dosage: 2 INHALATION, 2/ DAYS, START DATE: SEP-2023
     Route: 065
  13. COVERAM [Concomitant]
     Active Substance: AMLODIPINE\PERINDOPRIL
     Indication: Hypertension
     Dosage: 5 MG EVERY 1 DAYS
     Route: 065
     Dates: start: 20240111
  14. ATORVASTATIN [Concomitant]
     Active Substance: ATORVASTATIN
     Indication: Blood cholesterol increased
     Dosage: 20 MG, EVERY 1 DAYS, START DATE: JUN-2022
     Route: 065
  15. EZETIMIBE [Concomitant]
     Active Substance: EZETIMIBE
     Indication: Blood cholesterol increased
     Dosage: 10 MG, EVERY 1 DAYS, START DATE: JAN-2018
     Route: 065
  16. POVIDONE-IODINE [Concomitant]
     Active Substance: POVIDONE-IODINE
     Indication: Prophylaxis
     Dosage: 1 TABLESPOONFUL, 3/DAYS
     Route: 065
     Dates: start: 20240108

REACTIONS (4)
  - Hypochloraemia [Recovered/Resolved]
  - Gastroenteritis [Recovered/Resolved]
  - Neutropenia [Recovered/Resolved]
  - Hyponatraemia [Recovered/Resolved]

NARRATIVE: CASE EVENT DATE: 20240117
